FAERS Safety Report 6328074-1 (Version None)
Quarter: 2009Q3

REPORT INFORMATION
  Report Type: 
  Country: None (occurrence: None)
  Receive Date: 20090825
  Receipt Date: 20080911
  Transmission Date: 20100115
  Serious: No
  Sender: FDA-Public Use
  Company Number: US-ABBOTT-08P-163-0471981-00

PATIENT
  Sex: Female
  Weight: 90.8 kg

DRUGS (8)
  1. SYNTHROID [Suspect]
     Indication: THYROID FUNCTION TEST ABNORMAL
     Route: 048
     Dates: start: 20000101
  2. SYNTHROID [Suspect]
     Route: 048
     Dates: start: 20040101
  3. HYDROCHLOROTHIAZIDE [Concomitant]
     Indication: DRUG USE FOR UNKNOWN INDICATION
     Route: 048
  4. OMEPRAZOLE MAGNESIUM [Concomitant]
     Indication: DRUG USE FOR UNKNOWN INDICATION
     Route: 048
     Dates: start: 20070101
  5. POTASSIUM CHLORIDE [Concomitant]
     Indication: DRUG USE FOR UNKNOWN INDICATION
     Route: 048
     Dates: start: 20080821
  6. TUMS [Concomitant]
     Indication: DRUG USE FOR UNKNOWN INDICATION
     Dosage: 1 PILL
     Route: 048
  7. FLUTICASONE PROPIONATE [Concomitant]
     Indication: ALLERGIC SINUSITIS
     Dosage: 1 SPRAY
     Route: 045
  8. DIPROPHYLLINE [Concomitant]
     Indication: ALLERGIC SINUSITIS
     Dosage: 1 SPRAY
     Route: 045

REACTIONS (1)
  - THYROID FUNCTION TEST ABNORMAL [None]
